FAERS Safety Report 9179391 (Version 1)
Quarter: 2012Q4

REPORT INFORMATION
  Report Type: 
  Country: US (occurrence: US)
  Receive Date: 20121029
  Receipt Date: 20121029
  Transmission Date: 20130627
  Serious: No
  Sender: FDA-Public Use
  Company Number: US-AMGEN-USASP2012052729

PATIENT
  Age: 19 Year
  Sex: Female

DRUGS (9)
  1. ENBREL [Suspect]
     Indication: JUVENILE ARTHRITIS
     Dosage: 25 mg, 2 times/wk
     Route: 058
  2. METHOTREXATE [Concomitant]
     Dosage: 25 mg, UNK
  3. NASONEX AQUEOUS [Concomitant]
     Dosage: 50 mug, UNK
  4. ALLEGRA [Concomitant]
     Dosage: 30 mg, UNK
  5. IMITREX                            /01044801/ [Concomitant]
     Dosage: 25 mg, UNK
  6. MOBIC [Concomitant]
     Dosage: 7.5 mg, UNK
  7. VITAMINE C [Concomitant]
     Dosage: 500 mg, UNK
  8. FOLIC ACID [Concomitant]
     Dosage: UNK
  9. MULTIVITAMINES AND MINERALS [Concomitant]
     Dosage: UNK

REACTIONS (2)
  - Tonsillectomy [Unknown]
  - Wisdom teeth removal [Unknown]
